FAERS Safety Report 7629022-4 (Version None)
Quarter: 2011Q3

REPORT INFORMATION
  Report Type: 
  Country: None (occurrence: None)
  Receive Date: 20110701
  Receipt Date: 20110701
  Transmission Date: 20111222
  Serious: Yes (Other)
  Sender: FDA-Public Use
  Company Number: 7022351

PATIENT
  Age: 38 Year
  Sex: Female

DRUGS (3)
  1. TRAMADOL HCL [Suspect]
  2. REBIF [Suspect]
     Indication: MULTIPLE SCLEROSIS
     Dosage: 44 MCG, 3 IN 1 WK, SUBCUTANEOUS
     Route: 058
     Dates: start: 20100831
  3. ZANAFLEX [Suspect]

REACTIONS (10)
  - TOOTHACHE [None]
  - STRESS [None]
  - DEHYDRATION [None]
  - CHEST PAIN [None]
  - BRONCHITIS [None]
  - EYE INJURY [None]
  - PAIN [None]
  - FALL [None]
  - BACK PAIN [None]
  - CONVULSION [None]
